FAERS Safety Report 6574738-4 (Version None)
Quarter: 2010Q1

REPORT INFORMATION
  Report Type: 
  Country: None (occurrence: None)
  Receive Date: 20100209
  Receipt Date: 20100204
  Transmission Date: 20100710
  Serious: Yes (Hospitalization, Other)
  Sender: FDA-Public Use
  Company Number: PHEH2009US00449

PATIENT
  Sex: Male
  Weight: 444.44 kg

DRUGS (41)
  1. ELIDEL [Suspect]
     Indication: ECZEMA
     Dosage: UNK
     Route: 061
     Dates: start: 20051021
  2. PROTOPIC [Suspect]
     Indication: ECZEMA
     Dosage: UNK
     Route: 061
     Dates: start: 20040414
  3. DEPAKOTE [Concomitant]
  4. HYDROCODONE [Concomitant]
     Indication: PAIN
  5. LEVOXYL [Concomitant]
  6. ALLEGRA [Concomitant]
  7. CALCIUM CARBONATE [Concomitant]
  8. LYRICA [Concomitant]
  9. NEULASTA [Concomitant]
  10. LITHIUM CARBONATE [Concomitant]
     Indication: BIPOLAR DISORDER
  11. XANAX [Concomitant]
  12. LORTAB [Concomitant]
     Indication: PAIN
  13. LASIX [Concomitant]
  14. AMBIEN [Concomitant]
  15. LORAZEPAM [Concomitant]
  16. DULCOLAX [Concomitant]
  17. ALLOPURINOL [Concomitant]
  18. BENADRYL ^ACHE^ [Concomitant]
  19. TYLENOL-500 [Concomitant]
  20. DEMEROL [Concomitant]
  21. PANTOPRAZOLE [Concomitant]
  22. LEVAQUIN [Concomitant]
  23. FOLIC ACID [Concomitant]
  24. M.V.I. [Concomitant]
  25. VITAMIN C [Concomitant]
  26. VITAMIN E [Concomitant]
  27. CALCIUM [Concomitant]
  28. LOVAZA [Concomitant]
  29. DECADRON                                /CAN/ [Concomitant]
  30. ALOXI [Concomitant]
  31. CYTOXAN [Concomitant]
  32. VINCRISTINE [Concomitant]
  33. METAMUCIL [Concomitant]
  34. GLYCOLAX [Concomitant]
  35. SPIRONOLACTONE [Concomitant]
  36. SAW PALMETTO [Concomitant]
  37. POTASSIUM [Concomitant]
  38. COQ10 [Concomitant]
  39. ECHINACEA [Concomitant]
  40. GLUCOSAMINE /CHONDROITIN /MSM [Concomitant]
  41. SUPER B [Concomitant]

REACTIONS (70)
  - ABDOMINAL PAIN [None]
  - ABDOMINAL PAIN UPPER [None]
  - AGITATION [None]
  - ANAEMIA [None]
  - ARTERIOSCLEROSIS CORONARY ARTERY [None]
  - ATAXIA [None]
  - BACK PAIN [None]
  - BODY TINEA [None]
  - BONE MARROW FAILURE [None]
  - BRONCHOPNEUMONIA [None]
  - CATHETER PLACEMENT [None]
  - CELLULITIS [None]
  - CENTRAL VENOUS CATHETERISATION [None]
  - CERVICOBRACHIAL SYNDROME [None]
  - CONCUSSION [None]
  - CONSTIPATION [None]
  - CONTUSION [None]
  - DIARRHOEA [None]
  - DISEASE RECURRENCE [None]
  - DIZZINESS [None]
  - DYSPEPSIA [None]
  - DYSPNOEA [None]
  - ERYTHEMA [None]
  - EXTRANODAL MARGINAL ZONE B-CELL LYMPHOMA (MALT TYPE) [None]
  - FALL [None]
  - FATIGUE [None]
  - FEBRILE NEUTROPENIA [None]
  - FOOD POISONING [None]
  - GASTRIC DISORDER [None]
  - GASTRIC MUCOSAL HYPERTROPHY [None]
  - GASTRITIS EROSIVE [None]
  - HAEMATOCHEZIA [None]
  - HAEMATOMA [None]
  - HEADACHE [None]
  - HEART RATE IRREGULAR [None]
  - HIATUS HERNIA [None]
  - HYPOAESTHESIA [None]
  - HYPOTHYROIDISM [None]
  - INTERVERTEBRAL DISC DEGENERATION [None]
  - INTERVERTEBRAL DISC SPACE NARROWING [None]
  - LEUKOPENIA [None]
  - LUMBAR RADICULOPATHY [None]
  - LUNG INFILTRATION [None]
  - LUNG NEOPLASM MALIGNANT [None]
  - MENTAL STATUS CHANGES [None]
  - NAUSEA [None]
  - NECK PAIN [None]
  - NEUROPATHY PERIPHERAL [None]
  - NEUTROPENIA [None]
  - NODULE [None]
  - NON-CARDIAC CHEST PAIN [None]
  - NON-HODGKIN'S LYMPHOMA [None]
  - OCCIPITAL NEURALGIA [None]
  - OEDEMA [None]
  - OEDEMA PERIPHERAL [None]
  - PAIN IN EXTREMITY [None]
  - PLEURAL DISORDER [None]
  - POLLAKIURIA [None]
  - POLYMYALGIA RHEUMATICA [None]
  - POLYNEUROPATHY [None]
  - SLEEP DISORDER [None]
  - SYNCOPE [None]
  - TEMPORAL ARTERITIS [None]
  - THROMBOCYTOPENIA [None]
  - TRAUMATIC BRAIN INJURY [None]
  - TREMOR [None]
  - ULCER [None]
  - URINARY TRACT PAIN [None]
  - VITAMIN B12 DEFICIENCY [None]
  - VOMITING [None]
